FAERS Safety Report 21143875 (Version 1)
Quarter: 2022Q3

REPORT INFORMATION
  Report Type: Spontaneous
  Country: CN (occurrence: CN)
  Receive Date: 20220728
  Receipt Date: 20220728
  Transmission Date: 20221027
  Serious: Yes (Life-Threatening)
  Sender: FDA-Public Use
  Company Number: CN-NAPPMUNDI-GBR-2022-0100078

PATIENT
  Age: 53 Year
  Sex: Female
  Weight: 48 kg

DRUGS (21)
  1. OXYCODONE HYDROCHLORIDE [Suspect]
     Active Substance: OXYCODONE HYDROCHLORIDE
     Indication: Product used for unknown indication
     Dosage: 10 MILLIGRAM, Q12H
     Route: 048
     Dates: start: 20210802
  2. TRAMADOL HYDROCHLORIDE [Suspect]
     Active Substance: TRAMADOL HYDROCHLORIDE
     Indication: Analgesic therapy
     Dosage: 0.1 GRAM (AT 23:45)
     Route: 030
     Dates: start: 20210804, end: 20210804
  3. FENTANYL [Suspect]
     Active Substance: FENTANYL
     Indication: Product used for unknown indication
     Dosage: 4.2 MILLIGRAM, Q3W
     Route: 062
     Dates: start: 20210805, end: 20210822
  4. GLUTATHIONE [Concomitant]
     Active Substance: GLUTATHIONE
     Dosage: 2 GRAM, DAILY 2 GRAM (IN 5% GS 250ML)
     Dates: start: 20210802, end: 20210822
  5. ENOXAPARIN SODIUM [Concomitant]
     Active Substance: ENOXAPARIN SODIUM
     Dosage: 2000 INTERNATIONAL UNIT, DAILY
     Dates: start: 20210818, end: 20210822
  6. ENOXAPARIN SODIUM [Concomitant]
     Active Substance: ENOXAPARIN SODIUM
     Dosage: 4000 INTERNATIONAL UNIT, DAILY
     Dates: start: 20210802, end: 20210805
  7. ALBUMIN HUMAN [Concomitant]
     Active Substance: ALBUMIN HUMAN
     Dosage: 10 GRAM, BID
     Dates: start: 20210816, end: 20210822
  8. ALBUMIN HUMAN [Concomitant]
     Active Substance: ALBUMIN HUMAN
     Dosage: 10 GRAM, DAILY
     Dates: start: 20210803, end: 20210816
  9. MEROPENEM [Concomitant]
     Active Substance: MEROPENEM
     Dosage: 0.5 GRAM (IN NS 100ML), Q8H
     Dates: start: 20210803, end: 20210816
  10. PROMETHAZINE [Concomitant]
     Active Substance: PROMETHAZINE HYDROCHLORIDE
     Dosage: 25 MILLIGRAM
     Dates: start: 20210803
  11. ENDOSTATIN [Concomitant]
     Active Substance: ENDOSTATIN
     Dosage: 90 MILLIGRAM
     Dates: start: 20210803
  12. CLINOMEL [Concomitant]
     Active Substance: AMINO ACIDS\DEXTROSE\ELECTROLYTES NOS\SOYBEAN OIL
     Dosage: 1000 MILLILITER, DAILY (WITH 10% SODIUM CHLORIDE 30 ML)
     Dates: start: 20210805, end: 20210822
  13. SNAKE VENOM ANTISERUM [Concomitant]
     Dosage: 1UV
     Dates: start: 20210805
  14. OMEPRAZOLE [Concomitant]
     Active Substance: OMEPRAZOLE
     Dosage: 40 MILLIGRAM, Q12H (IN 100ML NS),
     Dates: start: 20210818, end: 20210822
  15. OMEPRAZOLE [Concomitant]
     Active Substance: OMEPRAZOLE
     Dosage: 40 MILLIGRAM, DAILY (IN 100ML NS)
     Dates: start: 20210806, end: 20210818
  16. TORSEMIDE [Concomitant]
     Active Substance: TORSEMIDE
     Dosage: 10 MILLIGRAM, BID (10 MGBIDV)
     Dates: start: 20210819, end: 20210821
  17. TORSEMIDE [Concomitant]
     Active Substance: TORSEMIDE
     Dosage: 10 MILLIGRAM, DAILY (10 MGQDV)
     Dates: start: 20210818, end: 20210819
  18. TORSEMIDE [Concomitant]
     Active Substance: TORSEMIDE
     Dosage: 10 MILLIGRAM, DAILY (10 MGQDV)
     Dates: start: 20210810, end: 20210816
  19. FUROSEMIDE [Concomitant]
     Active Substance: FUROSEMIDE
     Dosage: 20 MILLIGRAM, BID (20 MG BIDV)
     Dates: start: 20210821, end: 20210822
  20. FLUCONAZOLE [Concomitant]
     Active Substance: FLUCONAZOLE
     Dosage: 50 MILLIGRAM, DAILY
     Dates: start: 20210811, end: 20210818
  21. CALCIUM GLUCONATE [Concomitant]
     Active Substance: CALCIUM GLUCONATE
     Dosage: 10 MILLILITER, DAILY (10 MLQDV)
     Dates: start: 20210817, end: 20210822

REACTIONS (4)
  - Intestinal obstruction [Not Recovered/Not Resolved]
  - Constipation [Unknown]
  - Nausea [Unknown]
  - Vomiting [Unknown]

NARRATIVE: CASE EVENT DATE: 20210805
